FAERS Safety Report 9518199 (Version 1)
Quarter: 2013Q1

REPORT INFORMATION
  Report Type: Spontaneous
  Country: US (occurrence: None)
  Receive Date: 20130305
  Receipt Date: 20130305
  Transmission Date: 20140127
  Serious: Yes (Other)
  Sender: FDA-Public Use
  Company Number: 163-21880-12093366

PATIENT
  Age: 86 Year
  Sex: Female

DRUGS (6)
  1. REVLIMID [Suspect]
     Indication: PLASMA CELL MYELOMA
     Dosage: 25 MG, 21 IN 21 D, PO
     Route: 048
  2. DEXAMETHASONE [Suspect]
     Indication: PLASMA CELL MYELOMA
  3. BIAXIN (CLARITHROMYCIN) [Concomitant]
  4. MULTIPLE VITAMIN (MULTIVITAMINS) [Concomitant]
  5. BIAXIN(CLARITHROMYCIN) [Concomitant]
  6. MULTIPLE VITAMIN (MULTIVITAMINS [Concomitant]

REACTIONS (2)
  - Unevaluable event [None]
  - Onychoclasis [None]
